FAERS Safety Report 14156498 (Version 3)
Quarter: 2018Q4

REPORT INFORMATION
  Report Type: Spontaneous
  Country: US (occurrence: US)
  Receive Date: 20171103
  Receipt Date: 20181018
  Transmission Date: 20190204
  Serious: Yes (Other)
  Sender: FDA-Public Use
  Company Number: US-BRISTOL-MYERS SQUIBB COMPANY-BMS-2017-095245

PATIENT
  Age: 11 Year
  Sex: Female

DRUGS (4)
  1. DESOXIMETASONE. [Concomitant]
     Active Substance: DESOXIMETASONE
     Indication: DERMATITIS ATOPIC
     Route: 065
  2. TRIAMCINOLONE ACETONIDE. [Suspect]
     Active Substance: TRIAMCINOLONE ACETONIDE
     Indication: DERMATITIS ATOPIC
     Route: 061
  3. DESONIDE. [Concomitant]
     Active Substance: DESONIDE
     Indication: DERMATITIS ATOPIC
     Route: 065
  4. BENADRYL [Concomitant]
     Active Substance: DIPHENHYDRAMINE HYDROCHLORIDE
     Indication: DERMATITIS ATOPIC
     Route: 048

REACTIONS (1)
  - Iridoschisis [Recovering/Resolving]
